FAERS Safety Report 20062526 (Version 1)
Quarter: 2021Q4

REPORT INFORMATION
  Report Type: Spontaneous
  Country: CN (occurrence: None)
  Receive Date: 20211112
  Receipt Date: 20211112
  Transmission Date: 20220303
  Serious: Yes (Other)
  Sender: FDA-Public Use
  Company Number: 2021A802484

PATIENT
  Age: 23011 Day
  Sex: Male

DRUGS (1)
  1. CRESTOR [Suspect]
     Active Substance: ROSUVASTATIN CALCIUM
     Indication: Hyperlipidaemia
     Dosage: 1TABLET QD
     Route: 048
     Dates: start: 20210917, end: 20210928

REACTIONS (1)
  - Renal injury [Recovering/Resolving]

NARRATIVE: CASE EVENT DATE: 20210922
